FAERS Safety Report 8801911 (Version 1)
Quarter: 2012Q4

REPORT INFORMATION
  Report Type: Report from Study
  Country: DK (occurrence: NL)
  Receive Date: 20120921
  Receipt Date: 20120921
  Transmission Date: 20130627
  Serious: Yes (Hospitalization)
  Sender: FDA-Public Use
  Company Number: NL-FRI-1000038756

PATIENT
  Age: 69 Year
  Sex: Female

DRUGS (7)
  1. ESCITALOPRAM [Suspect]
     Indication: TORTICOLLIS
     Dosage: 10 mg
     Route: 048
     Dates: start: 20120424, end: 20120428
  2. PROPRANOLOL [Concomitant]
     Dosage: 80 mg
  3. SALAZOPYRINE [Concomitant]
     Dosage: 1000 mg
  4. ULCOGANT [Concomitant]
     Dosage: 3 Dosage forms
  5. ASCAL [Concomitant]
     Dosage: 80 mg
  6. ESOMEPRAZOL [Concomitant]
     Dosage: 80 mg
  7. NAPROXEN [Concomitant]

REACTIONS (6)
  - Panic attack [Recovered/Resolved]
  - Torticollis [Recovered/Resolved]
  - Hyperhidrosis [Recovered/Resolved]
  - Abdominal pain upper [Recovered/Resolved]
  - Abdominal pain [Recovered/Resolved]
  - Off label use [Recovered/Resolved]
